FAERS Safety Report 8116252-0 (Version None)
Quarter: 2012Q1

REPORT INFORMATION
  Report Type: 
  Country: None (occurrence: None)
  Receive Date: 20120206
  Receipt Date: 20110809
  Transmission Date: 20120608
  Serious: Yes (Hospitalization, Other)
  Sender: FDA-Public Use
  Company Number: US-BAYER-2011-009288

PATIENT
  Age: 57 Year
  Sex: Male

DRUGS (19)
  1. THIAMINE HCL [Concomitant]
     Indication: SUPPLEMENTATION THERAPY
     Dosage: 100 MG, UNK
     Route: 048
     Dates: start: 20081101
  2. FOLIC ACID [Concomitant]
     Indication: PRODUCT USED FOR UNKNOWN INDICATION
     Dosage: 1 MG, QD
     Route: 048
     Dates: start: 20081101
  3. NEXIUM [Concomitant]
     Indication: ANTACID THERAPY
     Dosage: 40 MG, UNK
     Route: 048
     Dates: start: 20081101
  4. ACETAMINOPHEN [Concomitant]
     Indication: HEADACHE
     Dosage: 2 DF, UNK
     Route: 048
     Dates: start: 20091120
  5. LANTUS [Concomitant]
     Indication: TYPE 2 DIABETES MELLITUS
     Dosage: 20 U, UNK
     Route: 058
     Dates: start: 20090501
  6. TRAMADOL HCL [Concomitant]
     Dosage: DAILY DOSE 50 MG
     Route: 048
     Dates: start: 20100709
  7. NEXAVAR [Suspect]
     Dosage: 200 MG, BID
     Route: 048
     Dates: start: 20091203, end: 20100806
  8. METOCLOPRAMIDE [Concomitant]
     Indication: NAUSEA
     Dosage: 10 MG, TIW
     Route: 048
     Dates: start: 20090301
  9. BUMETANIDE [Concomitant]
     Indication: FLUID RETENTION
     Dosage: 1 DF, UNK
     Route: 048
     Dates: start: 20090801
  10. LACTULOSE [Concomitant]
     Indication: HEPATIC ENCEPHALOPATHY
     Dosage: 4 TO 6 TBSPS
     Route: 048
     Dates: start: 20100621, end: 20100625
  11. TYLENOL SINUS MEDICATION [Concomitant]
     Indication: SINUSITIS
     Dosage: 2 DF, UNK
     Route: 048
     Dates: start: 20091207
  12. ALLEGRA [Concomitant]
     Indication: SINUSITIS
     Dosage: 180 MG, QD
     Route: 048
     Dates: start: 20091207
  13. GAVISCON [Concomitant]
     Indication: ANTACID THERAPY
     Dosage: 1 TBSP
     Route: 048
     Dates: start: 20090501
  14. TRAMADOL HCL [Concomitant]
     Indication: PAIN
     Dosage: 50 MG, TID, PRN
     Dates: start: 20091120
  15. NEXAVAR [Suspect]
     Indication: HEPATIC NEOPLASM MALIGNANT
     Dosage: DAILY DOSE 200 MG
     Route: 048
     Dates: start: 20091201
  16. AMITRIPTYLINE HCL [Concomitant]
     Indication: DEPRESSION
     Dosage: 50 MG, UNK
     Route: 048
     Dates: start: 20091207
  17. LACTULOSE [Concomitant]
     Indication: PRODUCT USED FOR UNKNOWN INDICATION
     Dosage: 10MG/15
     Route: 048
     Dates: start: 20090101
  18. SPIRONOLACTONE [Concomitant]
     Indication: ASCITES
     Dosage: 100 MG, UNK
     Route: 048
     Dates: start: 20090601
  19. SPIRONOLACTONE [Concomitant]
     Dosage: DAILY DOSE 200 MG
     Route: 048
     Dates: start: 20100709

REACTIONS (4)
  - ASCITES [None]
  - HYPONATRAEMIA [None]
  - FLUID OVERLOAD [None]
  - HEPATIC ENCEPHALOPATHY [None]
